FAERS Safety Report 5007324-8 (Version None)
Quarter: 2006Q2

REPORT INFORMATION
  Report Type: 
  Country: None (occurrence: None)
  Receive Date: 20060518
  Receipt Date: 20060518
  Transmission Date: 20061013
  Serious: Yes (Hospitalization)
  Sender: FDA-Public Use
  Company Number: None

PATIENT
  Age: 65 Year
  Sex: Male
  Weight: 79.4 kg

DRUGS (2)
  1. DOXYCYCLINE [Suspect]
  2. OMEPRAZOLE [Concomitant]

REACTIONS (1)
  - RASH [None]
